FAERS Safety Report 8179616-5 (Version None)
Quarter: 2012Q1

REPORT INFORMATION
  Report Type: 
  Country: None (occurrence: None)
  Receive Date: 20120229
  Receipt Date: 20120229
  Transmission Date: 20120608
  Serious: No
  Sender: FDA-Public Use
  Company Number: None

PATIENT
  Age: 24 Year
  Sex: Female
  Weight: 64.8644 kg

DRUGS (1)
  1. PROPOFOL [Suspect]
     Indication: ANAESTHESIA
     Dosage: 150MG ONE IV
     Route: 042
     Dates: start: 20120214

REACTIONS (1)
  - NO THERAPEUTIC RESPONSE [None]
